FAERS Safety Report 23418443 (Version 4)
Quarter: 2024Q1

REPORT INFORMATION
  Report Type: Report from Study
  Country: US (occurrence: US)
  Receive Date: 20240118
  Receipt Date: 20240311
  Transmission Date: 20240409
  Serious: Yes (Hospitalization)
  Sender: FDA-Public Use
  Company Number: US-PARATEK PHARMACEUTICALS, INC.-2023PTK00670

PATIENT
  Sex: Male
  Weight: 58.957 kg

DRUGS (7)
  1. NUZYRA [Suspect]
     Active Substance: OMADACYCLINE
     Indication: Pneumonia bacterial
     Dosage: 300 MG, 1X/DAY
     Route: 048
     Dates: start: 20231117
  2. NUZYRA [Suspect]
     Active Substance: OMADACYCLINE
     Indication: Pneumonia aspiration
     Dosage: 300 MG, 1X/DAY
     Route: 048
  3. AMIKACIN [Suspect]
     Active Substance: AMIKACIN
     Dosage: UNK
     Route: 041
  4. LINEZOLID [Suspect]
     Active Substance: LINEZOLID
     Dosage: UNK
     Route: 041
  5. UNSPECIFIED INGREDIENT [Suspect]
     Active Substance: UNSPECIFIED INGREDIENT
     Dosage: UNK
     Route: 042
  6. ROPINIROLE [Concomitant]
     Active Substance: ROPINIROLE
     Dosage: 0.25 MG, 1X/DAY AT 0530
  7. ROPINIROLE [Concomitant]
     Active Substance: ROPINIROLE
     Dosage: 1 MG, 1X/DAY AT NIGHT BEFORE BED

REACTIONS (7)
  - Internal haemorrhage [Unknown]
  - Hospitalisation [Unknown]
  - Feeling hot [Recovering/Resolving]
  - Dyspnoea [Unknown]
  - Diarrhoea [Unknown]
  - Incorrect dose administered [Not Recovered/Not Resolved]
  - Incorrect product administration duration [Not Recovered/Not Resolved]

NARRATIVE: CASE EVENT DATE: 20230101
